FAERS Safety Report 15030436 (Version 2)
Quarter: 2018Q3

REPORT INFORMATION
  Report Type: Report from Study
  Country: JP (occurrence: JP)
  Receive Date: 20180619
  Receipt Date: 20180702
  Transmission Date: 20181010
  Serious: Yes (Hospitalization)
  Sender: FDA-Public Use
  Company Number: JP-ROCHE-2137885

PATIENT
  Age: 67 Year
  Sex: Female

DRUGS (39)
  1. ADRIACIN [Suspect]
     Active Substance: DOXORUBICIN HYDROCHLORIDE
     Route: 041
     Dates: start: 20171229, end: 20180102
  2. TRAMAL [Suspect]
     Active Substance: TRAMADOL
     Route: 048
     Dates: start: 20180517, end: 20180525
  3. CALONAL [Suspect]
     Active Substance: ACETAMINOPHEN
     Indication: INFUSION RELATED REACTION
     Route: 048
     Dates: start: 20180220, end: 20180220
  4. NEXIUM [Suspect]
     Active Substance: ESOMEPRAZOLE MAGNESIUM
     Route: 048
     Dates: start: 20180106
  5. DAIPHEN [Suspect]
     Active Substance: SULFAMETHOXAZOLE\TRIMETHOPRIM
     Indication: INFECTION PROPHYLAXIS
     Dosage: INFECTION PROPHYLAXIS
     Route: 048
     Dates: start: 20171228
  6. TRAMAL [Suspect]
     Active Substance: TRAMADOL
     Indication: TUMOUR PAIN
     Route: 048
     Dates: start: 20171226, end: 20180111
  7. CALONAL [Suspect]
     Active Substance: ACETAMINOPHEN
     Indication: TUMOUR PAIN
     Dosage: AS REQUIRED,
     Route: 048
     Dates: start: 20180106, end: 20180111
  8. NEXIUM [Suspect]
     Active Substance: ESOMEPRAZOLE MAGNESIUM
     Indication: GASTROINTESTINAL MUCOSAL DISORDER
     Route: 048
     Dates: start: 20171226, end: 20180105
  9. VENETOCLAX. [Suspect]
     Active Substance: VENETOCLAX
     Indication: CHRONIC LYMPHOCYTIC LEUKAEMIA
     Route: 048
     Dates: start: 20180213, end: 20180530
  10. VENETOCLAX. [Suspect]
     Active Substance: VENETOCLAX
     Route: 048
     Dates: start: 20180123, end: 20180129
  11. VICCLOX [Suspect]
     Active Substance: ACYCLOVIR SODIUM
     Indication: INFECTION PROPHYLAXIS
     Dosage: INFECTION PROPHYLAXIS
     Route: 048
     Dates: start: 20170226
  12. ROSUVASTATIN. [Suspect]
     Active Substance: ROSUVASTATIN
     Indication: DYSLIPIDAEMIA
     Route: 048
     Dates: start: 20180214
  13. HYDROCORTONE [Suspect]
     Active Substance: HYDROCORTISONE
     Route: 041
     Dates: start: 20180320, end: 20180320
  14. POLARAMINE [Suspect]
     Active Substance: DEXCHLORPHENIRAMINE MALEATE
     Indication: INFUSION RELATED REACTION
     Route: 041
     Dates: start: 20180220, end: 20180220
  15. VENETOCLAX. [Suspect]
     Active Substance: VENETOCLAX
     Route: 048
     Dates: start: 20180116, end: 20180122
  16. VENETOCLAX. [Suspect]
     Active Substance: VENETOCLAX
     Route: 048
     Dates: start: 20180206, end: 20180212
  17. ADRIACIN [Suspect]
     Active Substance: DOXORUBICIN HYDROCHLORIDE
     Indication: CHRONIC LYMPHOCYTIC LEUKAEMIA
     Route: 041
     Dates: start: 20171229, end: 20180102
  18. DOMPERIDONE [Suspect]
     Active Substance: DOMPERIDONE
     Indication: ABDOMINAL PAIN
     Dosage: AS REQUIRED
     Route: 048
     Dates: start: 20180517, end: 20180524
  19. CALONAL [Suspect]
     Active Substance: ACETAMINOPHEN
     Indication: CHRONIC LYMPHOCYTIC LEUKAEMIA
     Route: 048
     Dates: start: 20180418, end: 20180418
  20. CALONAL [Suspect]
     Active Substance: ACETAMINOPHEN
     Route: 048
     Dates: start: 20180516, end: 20180516
  21. LASIX [Suspect]
     Active Substance: FUROSEMIDE
     Indication: PROPHYLAXIS
     Dosage: AS REQUIRED, EDEMA PROPHYLAXIS
     Route: 041
     Dates: start: 20180124, end: 20180221
  22. POLARAMINE [Suspect]
     Active Substance: DEXCHLORPHENIRAMINE MALEATE
     Route: 041
     Dates: start: 20180516, end: 20180516
  23. MAGMITT [Suspect]
     Active Substance: MAGNESIUM OXIDE
     Dosage: AS REQUIRED
     Route: 048
     Dates: start: 20180206
  24. CALONAL [Suspect]
     Active Substance: ACETAMINOPHEN
     Indication: ABDOMINAL PAIN
     Route: 048
     Dates: start: 20180320, end: 20180320
  25. HYDROCORTONE [Suspect]
     Active Substance: HYDROCORTISONE
     Route: 041
     Dates: start: 20180418, end: 20180418
  26. ONCOVIN [Suspect]
     Active Substance: VINCRISTINE SULFATE
     Indication: CHRONIC LYMPHOCYTIC LEUKAEMIA
     Route: 041
     Dates: start: 20171229, end: 20171229
  27. HYDROCORTONE [Suspect]
     Active Substance: HYDROCORTISONE
     Indication: INFUSION RELATED REACTION
     Route: 041
     Dates: start: 20180220, end: 20180220
  28. RITUXIMAB. [Suspect]
     Active Substance: RITUXIMAB
     Indication: CHRONIC LYMPHOCYTIC LEUKAEMIA
     Route: 042
     Dates: start: 20180220, end: 20180220
  29. RITUXIMAB. [Suspect]
     Active Substance: RITUXIMAB
     Dosage: WEEK 10 DAY 1 AND THEREAFTER (500 MG/M2)
     Route: 042
     Dates: start: 20180320, end: 20180516
  30. DOMPERIDONE [Suspect]
     Active Substance: DOMPERIDONE
     Indication: TUMOUR PAIN
     Dosage: AS REQUIRED
     Route: 048
     Dates: start: 20171226, end: 20180111
  31. BELSOMRA [Suspect]
     Active Substance: SUVOREXANT
     Indication: INSOMNIA
     Route: 048
     Dates: start: 20180103, end: 20180111
  32. FILGRASTIM [Suspect]
     Active Substance: FILGRASTIM
     Indication: CYTOPENIA
     Route: 058
     Dates: start: 20180102, end: 20180223
  33. VENETOCLAX. [Suspect]
     Active Substance: VENETOCLAX
     Route: 048
     Dates: start: 20180130, end: 20180205
  34. RITUXIMAB. [Suspect]
     Active Substance: RITUXIMAB
     Route: 042
     Dates: start: 20180220, end: 20180220
  35. MAGMITT [Suspect]
     Active Substance: MAGNESIUM OXIDE
     Indication: CONSTIPATION
     Dosage: AS REQUIRED
     Route: 048
     Dates: start: 20171226, end: 20180115
  36. CALONAL [Suspect]
     Active Substance: ACETAMINOPHEN
     Dosage: AS REQUIRED,
     Route: 048
     Dates: start: 20180525
  37. HYDROCORTONE [Suspect]
     Active Substance: HYDROCORTISONE
     Route: 041
     Dates: start: 20180516, end: 20180516
  38. POLARAMINE [Suspect]
     Active Substance: DEXCHLORPHENIRAMINE MALEATE
     Route: 041
     Dates: start: 20180320, end: 20180320
  39. POLARAMINE [Suspect]
     Active Substance: DEXCHLORPHENIRAMINE MALEATE
     Route: 041
     Dates: start: 20180418, end: 20180418

REACTIONS (1)
  - Chronic lymphocytic leukaemia [Not Recovered/Not Resolved]

NARRATIVE: CASE EVENT DATE: 20180528
